FAERS Safety Report 15042487 (Version 1)
Quarter: 2018Q2

REPORT INFORMATION
  Report Type: Spontaneous
  Country: AU (occurrence: AU)
  Receive Date: 20180621
  Receipt Date: 20180621
  Transmission Date: 20180711
  Serious: Yes (Other)
  Sender: FDA-Public Use
  Company Number: AU-009507513-1806AUS006118

PATIENT
  Age: 31 Year
  Sex: Female

DRUGS (2)
  1. TEMOZOLOMIDE. [Suspect]
     Active Substance: TEMOZOLOMIDE
     Dosage: UNK
  2. CAELYX [Suspect]
     Active Substance: DOXORUBICIN HYDROCHLORIDE
     Dosage: UNK

REACTIONS (6)
  - Candida infection [Unknown]
  - Sepsis [Unknown]
  - Pancytopenia [Unknown]
  - Tooth abscess [Unknown]
  - Otitis media [Unknown]
  - Epistaxis [Unknown]
